FAERS Safety Report 17006676 (Version 4)
Quarter: 2020Q1

REPORT INFORMATION
  Report Type: Spontaneous
  Country: SE (occurrence: SE)
  Receive Date: 20191107
  Receipt Date: 20200218
  Transmission Date: 20200409
  Serious: Yes (Death, Hospitalization)
  Sender: FDA-Public Use
  Company Number: SE-PURDUE-GBR-2019-0072242

PATIENT
  Age: 77 Year
  Sex: Male
  Weight: 74.4 kg

DRUGS (2)
  1. OXYNORM [Suspect]
     Active Substance: OXYCODONE HYDROCHLORIDE
     Indication: PAIN
     Dosage: 0.25 ML, PRN (STRENGTH 10 MG/ML)
     Route: 065
     Dates: start: 20191111, end: 20191111
  2. OXYNORM [Suspect]
     Active Substance: OXYCODONE HYDROCHLORIDE
     Dosage: 10 MG, BID
     Route: 048
     Dates: start: 20191017

REACTIONS (2)
  - Renal failure [Fatal]
  - Fall [Recovered/Resolved]

NARRATIVE: CASE EVENT DATE: 20191020
